FAERS Safety Report 6440935-1 (Version None)
Quarter: 2009Q4

REPORT INFORMATION
  Report Type: 
  Country: None (occurrence: None)
  Receive Date: 20091116
  Receipt Date: 20091104
  Transmission Date: 20100525
  Serious: Yes (Other)
  Sender: FDA-Public Use
  Company Number: PHHY2009JP44043

PATIENT

DRUGS (4)
  1. DIOVAN [Suspect]
     Indication: HYPERTENSION
     Dosage: 40 MG/DAY
     Route: 048
  2. DIOVAN [Suspect]
     Dosage: 80 MG/DAY
     Route: 048
  3. DIOVAN [Suspect]
     Dosage: 40 MG/DAY
     Route: 048
  4. ADALAT [Concomitant]

REACTIONS (3)
  - BLOOD PRESSURE INCREASED [None]
  - DRUG INEFFECTIVE [None]
  - NAUSEA [None]
